FAERS Safety Report 16157310 (Version 2)
Quarter: 2019Q3

REPORT INFORMATION
  Report Type: Spontaneous
  Country: US (occurrence: US)
  Receive Date: 20190404
  Receipt Date: 20190930
  Transmission Date: 20191004
  Serious: No
  Sender: FDA-Public Use
  Company Number: US-MYLANLABS-2019M1025703

PATIENT
  Sex: Male
  Weight: 75 kg

DRUGS (3)
  1. METOPROLOL SUCCINATE. [Concomitant]
     Active Substance: METOPROLOL SUCCINATE
     Dosage: UNK
  2. DIAZEPAM TABLETS USP [Suspect]
     Active Substance: DIAZEPAM
     Indication: ANXIETY
     Dosage: 2.5 MILLIGRAM, BID
     Route: 048
  3. DIAZEPAM TABLETS USP [Suspect]
     Active Substance: DIAZEPAM
     Indication: DIZZINESS

REACTIONS (6)
  - Disorientation [Unknown]
  - Dizziness [Unknown]
  - Incorrect product administration duration [Unknown]
  - Off label use [Unknown]
  - Nasopharyngitis [Unknown]
  - Abdominal discomfort [Unknown]
